FAERS Safety Report 6600392-9 (Version None)
Quarter: 2010Q1

REPORT INFORMATION
  Report Type: 
  Country: None (occurrence: None)
  Receive Date: 20100217
  Receipt Date: 20100205
  Transmission Date: 20100710
  Serious: Yes (Death)
  Sender: FDA-Public Use
  Company Number: CQT2-2009-00040

PATIENT
  Age: 55 Year
  Sex: Male
  Weight: 86 kg

DRUGS (10)
  1. ANAGRELIDE HCL [Suspect]
     Indication: ESSENTIAL THROMBOCYTHAEMIA
     Dosage: 1 MG, 2X/DAY:BID, ORAL; 1.5 MG (DIVIDED INTO TWO DOSES), ORAL
     Route: 048
     Dates: start: 20080715, end: 20081026
  2. ANAGRELIDE HCL [Suspect]
     Indication: ESSENTIAL THROMBOCYTHAEMIA
     Dosage: 1 MG, 2X/DAY:BID, ORAL; 1.5 MG (DIVIDED INTO TWO DOSES), ORAL
     Route: 048
     Dates: start: 20051010
  3. ANAGRELIDE HCL [Suspect]
     Indication: ESSENTIAL THROMBOCYTHAEMIA
     Dosage: 1 MG, 2X/DAY:BID, ORAL; 1.5 MG (DIVIDED INTO TWO DOSES), ORAL
     Route: 048
     Dates: start: 20091028
  4. ACETYLSALICYLIC ACID SRT [Suspect]
     Indication: ESSENTIAL THROMBOCYTHAEMIA
     Dosage: 100 MG, 1X/DAY:QD, ORAL
     Route: 048
     Dates: start: 20060505
  5. ACENOCUMAROL(ACENOCOUMAROL) UNKNOWN [Suspect]
     Indication: ESSENTIAL THROMBOCYTHAEMIA
     Dosage: 3 MG, 1X/DAY:QD, ORAL
     Route: 048
     Dates: start: 19960523
  6. HYDROXYUREA [Suspect]
     Indication: ESSENTIAL THROMBOCYTHAEMIA
     Dosage: 500 MG, 2X/DAY:BID, ORAL
     Route: 048
     Dates: start: 19971205, end: 20051009
  7. CANDESARTAN CILEXETIL [Concomitant]
  8. ATENOLOL [Concomitant]
  9. GLICLAZIDE (GLICLAZIDE) [Concomitant]
  10. TAMSULOSINA (TAMSULOSIN HYDROCHLORIDE) [Concomitant]

REACTIONS (7)
  - ABDOMINAL DISTENSION [None]
  - AREFLEXIA [None]
  - CARDIO-RESPIRATORY ARREST [None]
  - GASTROINTESTINAL HYPERMOTILITY [None]
  - HYPOTENSION [None]
  - MYDRIASIS [None]
  - OXYGEN SATURATION DECREASED [None]
